FAERS Safety Report 5725041-3 (Version None)
Quarter: 2008Q2

REPORT INFORMATION
  Report Type: 
  Country: None (occurrence: None)
  Receive Date: 20080501
  Receipt Date: 20080423
  Transmission Date: 20081010
  Serious: Yes (Other)
  Sender: FDA-Public Use
  Company Number: US-GILEAD-2008-0016135

PATIENT
  Sex: Male
  Weight: 118.95 kg

DRUGS (16)
  1. LETAIRIS [Suspect]
     Indication: PULMONARY HYPERTENSION
     Route: 048
     Dates: start: 20080412
  2. LETAIRIS [Suspect]
     Route: 048
     Dates: start: 20080220, end: 20080322
  3. REVATIO [Concomitant]
     Route: 048
  4. FUROSEMIDE [Concomitant]
     Route: 048
  5. LISINOPRIL [Concomitant]
     Route: 048
  6. COUMADIN [Concomitant]
     Route: 048
  7. AMLODIPINE BESYLATE [Concomitant]
     Route: 048
  8. METFORMIN HCL [Concomitant]
     Route: 048
  9. ALLOPURINOL [Concomitant]
     Route: 048
  10. KLOR-CON M20 [Concomitant]
     Route: 048
  11. ASPIRIN [Concomitant]
     Route: 048
  12. NIASPAN [Concomitant]
     Route: 048
  13. ZETIA [Concomitant]
     Route: 048
  14. PREVACID [Concomitant]
     Route: 048
  15. MAALOX [Concomitant]
     Route: 048
  16. FISH OIL [Concomitant]
     Route: 048

REACTIONS (3)
  - FLUID RETENTION [None]
  - MELAENA [None]
  - WEIGHT INCREASED [None]
